FAERS Safety Report 4476243-8 (Version None)
Quarter: 2004Q3

REPORT INFORMATION
  Report Type: 
  Country: None (occurrence: None)
  Receive Date: 20040923
  Receipt Date: 20040719
  Transmission Date: 20050211
  Serious: No
  Sender: FDA-Public Use
  Company Number: USA040773048

PATIENT
  Age: 72 Year
  Sex: Female
  Weight: 52 kg

DRUGS (5)
  1. FORTEO [Suspect]
     Indication: OSTEOPOROSIS
     Dates: start: 20040714
  2. REMICADE                        /BRA/                          (INFLIX [Concomitant]
  3. METHOTREXATE [Concomitant]
  4. PREDNISONE TAB [Concomitant]
  5. FOSAMAX [Concomitant]

REACTIONS (4)
  - ARTHRITIS [None]
  - ASTHENIA [None]
  - DIZZINESS [None]
  - PYREXIA [None]
